FAERS Safety Report 24593805 (Version 2)
Quarter: 2025Q2

REPORT INFORMATION
  Report Type: Spontaneous
  Country: AU (occurrence: AU)
  Receive Date: 20241108
  Receipt Date: 20250616
  Transmission Date: 20250717
  Serious: Yes (Other)
  Sender: LUPIN
  Company Number: AU-GENERIC HEALTH PTY. LTD.-2024-10745

PATIENT
  Sex: Female

DRUGS (7)
  1. MORPHINE SULFATE [Suspect]
     Active Substance: MORPHINE SULFATE
     Indication: Product used for unknown indication
     Route: 065
  2. AMITRIPTYLINE [Suspect]
     Active Substance: AMITRIPTYLINE
     Indication: Depression
     Route: 065
  3. OLANZAPINE [Suspect]
     Active Substance: OLANZAPINE
     Indication: Bipolar disorder
     Route: 065
  4. OLANZAPINE [Suspect]
     Active Substance: OLANZAPINE
     Indication: Borderline personality disorder
  5. METRONIDAZOLE [Concomitant]
     Active Substance: METRONIDAZOLE
     Indication: Antibiotic therapy
     Route: 065
  6. IRON [Concomitant]
     Active Substance: IRON
     Indication: Mineral supplementation
  7. LITHIUM [Concomitant]
     Active Substance: LITHIUM
     Indication: Bipolar disorder
     Route: 065

REACTIONS (3)
  - Urticaria [Unknown]
  - Angioedema [Unknown]
  - Arthralgia [Unknown]
